FAERS Safety Report 17135636 (Version 2)
Quarter: 2019Q4

REPORT INFORMATION
  Report Type: Spontaneous
  Country: CN (occurrence: CN)
  Receive Date: 20191210
  Receipt Date: 20191216
  Transmission Date: 20200122
  Serious: Yes (Other)
  Sender: FDA-Public Use
  Company Number: CN-PFIZER INC-2019531252

PATIENT
  Age: 63 Year
  Sex: Female
  Weight: 50 kg

DRUGS (5)
  1. SODIUM CHLORIDE. [Concomitant]
     Active Substance: SODIUM CHLORIDE
     Dosage: 100 ML, 3X/DAY (EVERY 8 HOURS)
     Route: 041
     Dates: start: 20191027, end: 20191118
  2. MUCOSOLVAN [Concomitant]
     Active Substance: AMBROXOL HYDROCHLORIDE
     Indication: PRODUCTIVE COUGH
     Dosage: 30.000 MG, 2X/DAY
     Route: 041
     Dates: start: 20191027, end: 20191123
  3. SODIUM CHLORIDE. [Concomitant]
     Active Substance: SODIUM CHLORIDE
     Indication: VEHICLE SOLUTION USE
     Dosage: 100 ML, 2X/DAY
     Route: 041
     Dates: start: 20191027, end: 20191123
  4. TAZOCIN [Suspect]
     Active Substance: PIPERACILLIN SODIUM\TAZOBACTAM SODIUM
     Indication: INFECTION
     Dosage: 4.5 G, 3X/DAY (EVERY 8 HOURS)
     Route: 041
     Dates: start: 20191027, end: 20191118
  5. CIPROFLOXACIN LACTATE AND SODIUM CHLORIDE [Concomitant]
     Indication: INFECTION
     Dosage: 0.4 G, 2X/DAY  (EVERY 12 HOURS)
     Route: 041
     Dates: start: 20191107, end: 20191123

REACTIONS (3)
  - White blood cell count decreased [Recovering/Resolving]
  - Cytopenia [Recovering/Resolving]
  - Neutrophil count decreased [Recovering/Resolving]

NARRATIVE: CASE EVENT DATE: 20191119
